FAERS Safety Report 9548842 (Version 1)
Quarter: 2013Q3

REPORT INFORMATION
  Report Type: Spontaneous
  Country: MX (occurrence: MX)
  Receive Date: 20130924
  Receipt Date: 20130924
  Transmission Date: 20140515
  Serious: Yes (Death, Other)
  Sender: FDA-Public Use
  Company Number: MX-JNJFOC-20130908823

PATIENT
  Sex: 0

DRUGS (9)
  1. DOXORUBICIN [Suspect]
     Indication: DIFFUSE LARGE B-CELL LYMPHOMA
     Route: 042
  2. CYCLOPHOSPHAMIDE [Suspect]
     Indication: DIFFUSE LARGE B-CELL LYMPHOMA
     Route: 065
  3. VINCRISTINE [Suspect]
     Indication: DIFFUSE LARGE B-CELL LYMPHOMA
     Route: 065
  4. PREDNISONE [Suspect]
     Indication: DIFFUSE LARGE B-CELL LYMPHOMA
     Route: 065
  5. RITUXIMAB [Suspect]
     Indication: DIFFUSE LARGE B-CELL LYMPHOMA
     Route: 065
  6. RADIOTHERAPY [Suspect]
     Indication: PROPHYLAXIS
     Route: 065
  7. METHOTREXATE [Suspect]
     Indication: PROPHYLAXIS
     Route: 037
  8. HYDROCORTISONE [Suspect]
     Indication: PROPHYLAXIS
     Dosage: EVERY 5 DAYS FOR 6 DOSES FOLLOWED BY MAINTENANCE THERAPY, SAME SINGLE DOSE EVERY 3 MONTHS FOR 1 YEAR
     Route: 065
  9. CYTOSINE ARABINOSIDE [Suspect]
     Indication: PROPHYLAXIS
     Route: 065

REACTIONS (3)
  - Central nervous system lymphoma [Unknown]
  - Neoplasm progression [Fatal]
  - Metastases to central nervous system [Fatal]
